FAERS Safety Report 21086654 (Version 1)
Quarter: 2022Q3

REPORT INFORMATION
  Report Type: Spontaneous
  Country: ES (occurrence: ES)
  Receive Date: 20220715
  Receipt Date: 20220715
  Transmission Date: 20221027
  Serious: Yes (Hospitalization)
  Sender: FDA-Public Use
  Company Number: ES-AEMPS-1210248

PATIENT
  Age: 54 Year
  Sex: Female
  Weight: 50 kg

DRUGS (5)
  1. MIRTAZAPINE [Suspect]
     Active Substance: MIRTAZAPINE
     Indication: Mixed anxiety and depressive disorder
     Dosage: UNK (90.0 MG C/24 H)
     Route: 048
     Dates: start: 20140108, end: 20220614
  2. BECLOMETHASONE DIPROPIONATE\FORMOTEROL FUMARATE [Concomitant]
     Active Substance: BECLOMETHASONE DIPROPIONATE\FORMOTEROL FUMARATE
     Indication: Obstructive airways disorder
     Dosage: UNK (1.0 PUFF W/12H)
     Route: 065
     Dates: start: 20211210
  3. ALPRAZOLAM CINFA [Concomitant]
     Indication: Somatic symptom disorder
     Dosage: UNK (6.0 MG C/24 H NOC)
     Route: 065
     Dates: start: 20190819
  4. DEXKETOPROFEN TROMETAMOL [Concomitant]
     Active Substance: DEXKETOPROFEN TROMETAMOL
     Indication: Spinal osteoarthritis
     Dosage: UNK (25.0 MG DECOCE)
     Route: 065
     Dates: start: 20191122
  5. MOTILIUM [Concomitant]
     Active Substance: DOMPERIDONE
     Indication: Dyspepsia
     Dosage: UNK (10.0 MG A-DECOCE)
     Route: 065
     Dates: start: 20200904

REACTIONS (1)
  - Hyponatraemia [Recovering/Resolving]

NARRATIVE: CASE EVENT DATE: 20220607
